FAERS Safety Report 20572659 (Version 2)
Quarter: 2022Q1

REPORT INFORMATION
  Report Type: Spontaneous
  Country: US (occurrence: US)
  Receive Date: 20220309
  Receipt Date: 20220309
  Transmission Date: 20220423
  Serious: Yes (Hospitalization)
  Sender: FDA-Public Use
  Company Number: US-CELGENE-USA-20220302190

PATIENT
  Age: 54 Year
  Sex: Male

DRUGS (1)
  1. POMALYST [Suspect]
     Active Substance: POMALIDOMIDE
     Indication: Plasma cell myeloma
     Dosage: 3 MILLIGRAM
     Route: 048
     Dates: start: 20220223, end: 20220307

REACTIONS (5)
  - Feeding disorder [Unknown]
  - Gait inability [Unknown]
  - Tremor [Unknown]
  - Muscular weakness [Unknown]
  - Cough [Unknown]

NARRATIVE: CASE EVENT DATE: 20220306
